FAERS Safety Report 5337466-9 (Version None)
Quarter: 2007Q2

REPORT INFORMATION
  Report Type: 
  Country: None (occurrence: None)
  Receive Date: 20070529
  Receipt Date: 20070517
  Transmission Date: 20071010
  Serious: Yes (Other)
  Sender: FDA-Public Use
  Company Number: US-PFIZER INC-2007039861

PATIENT
  Age: 19 Year
  Sex: Male
  Weight: 100 kg

DRUGS (4)
  1. VFEND [Suspect]
     Indication: ASPERGILLOSIS
  2. VFEND [Suspect]
     Route: 048
  3. CASPOFUNGIN [Suspect]
     Indication: ASPERGILLOSIS
     Route: 042
  4. CASPOFUNGIN [Suspect]
     Dosage: DAILY DOSE:70MG
     Route: 042

REACTIONS (2)
  - HYPERCALCAEMIA [None]
  - PULMONARY MASS [None]
